FAERS Safety Report 8816687 (Version 6)
Quarter: 2013Q2

REPORT INFORMATION
  Report Type: Spontaneous
  Country: US (occurrence: None)
  Receive Date: 20120928
  Receipt Date: 20130607
  Transmission Date: 20140414
  Serious: Yes (Hospitalization, Other)
  Sender: FDA-Public Use
  Company Number: 2012-000969

PATIENT
  Age: 81 Year
  Sex: Female

DRUGS (36)
  1. ACTONEL (RISEDRONATE SODIUM) TABLET, 35MG [Suspect]
     Indication: OSTEOPOROSIS
     Route: 048
     Dates: start: 20061108, end: 201103
  2. ACTONEL (RISEDRONATE SODIUM) TABLET, 35MG [Suspect]
     Indication: OSTEOPOROSIS PROPHYLAXIS
     Route: 048
     Dates: start: 20061108, end: 201103
  3. FOSAMAX PLUS D (ALENDRONATE SODIUM, COLECALCIFEROL) [Suspect]
     Indication: OSTEOPOROSIS
     Dates: start: 20051123, end: 200608
  4. FOSAMAX PLUS D (ALENDRONATE SODIUM, COLECALCIFEROL) [Suspect]
     Indication: OSTEOPOROSIS PROPHYLAXIS
     Dates: start: 20051123, end: 200608
  5. FOSAMAX (ALENDRONATE SODIUM) [Suspect]
     Indication: OSTEOPOROSIS
     Route: 048
     Dates: start: 20011222, end: 20051123
  6. FOSAMAX (ALENDRONATE SODIUM) [Suspect]
     Indication: OSTEOPOROSIS PROPHYLAXIS
     Route: 048
     Dates: start: 20011222, end: 20051123
  7. FOSAMAX (ALENDRONATE SODIUM) [Suspect]
     Indication: OSTEOPOROSIS
     Route: 048
     Dates: start: 20011222, end: 20051123
  8. LOPRESSOR (METOPROLOL TARTRATE) [Concomitant]
  9. LISINOPRIL (LISINOPRIL) [Concomitant]
  10. LASIX /00032601/ (FUROSEMIDE) UNK, UNKUNK [Concomitant]
  11. KLOR-CON (POTASSIUM CHLORIDE) [Concomitant]
  12. SYNTHROID (LEVOTHYROXINE SODIUM) [Concomitant]
  13. EFFEXOR XR (VENLAFAXINE HYDROCHLORIDE) [Concomitant]
  14. OMEPRAZOLE (OMEPRAZOLE) [Concomitant]
  15. CELEBREX (CELECOXIB) [Concomitant]
  16. LIDODERM (LIDOCAINE) [Concomitant]
  17. NEURONTIN (GABAPENTIN) [Concomitant]
  18. HYDROCODONE BITARTRATE AND ACETAMINOPHEN (HYDROCODONE BITARTRATE, PARACETAMOL) [Concomitant]
  19. OSCAL D /00944201/ (CALCIUM CARBONATE, COLECALCIFEROL) [Concomitant]
  20. MULTIVITAMIN /00097801 (ASCORBIC ACID, CALCIUM PANTOTHENATE, ERGOCALCIFEROL, NICOTINAMIDE, PYRIDOXINE HYDROCHLORIDE, RETINAL, RIBOFLAVIN, THIAMINE HYDROCHLORIDE) [Concomitant]
  21. FIORICET (BUTALBITAL, CAFFEINE, PARACETAMOL) [Concomitant]
  22. TYLENOL ARTHRITIS (PARACETAMOL) [Concomitant]
  23. SANCTURA (TROSPIUM CHLORIDE) [Concomitant]
  24. FORTICAL /00371903/ (CALCITONIN, SALMON) [Concomitant]
  25. MIACALCIN (CALCITONIN, SALMON) [Concomitant]
  26. MIRALAX /00754501/ (MACROGOL) [Concomitant]
  27. ASPIRIN (ACETYLSALICYLIC ACID) [Concomitant]
  28. COLACE [Concomitant]
  29. DURAGESIC /00174601/ (FENTANYL) [Concomitant]
  30. LIDEX (FLUOCINONIDE) [Concomitant]
  31. MYCOSTATIN (NYSTATIN) [Concomitant]
  32. PROTONIX (PANTOPRAZOLE SODIUM SESQUIHYDRATE) [Concomitant]
  33. MAGNESIUM HYDROXIDE (MAGNESIUM HYDROXIDE) [Concomitant]
  34. PERCOCET /00867901/ (OXYCODONE HYDROCHLORIDE, PARACETAMOL) [Concomitant]
  35. CIPRO/00697201/ (CIPROFLOXACIN) [Concomitant]
  36. PEPCID /00706001/ (FAMOTIDINE) [Concomitant]

REACTIONS (16)
  - Femur fracture [None]
  - Pathological fracture [None]
  - Comminuted fracture [None]
  - Fall [None]
  - Pain in extremity [None]
  - Bone disorder [None]
  - Pain [None]
  - Low turnover osteopathy [None]
  - Stress fracture [None]
  - Pulmonary embolism [None]
  - Heparin-induced thrombocytopenia [None]
  - Drug hypersensitivity [None]
  - Chronic obstructive pulmonary disease [None]
  - Urinary tract infection [None]
  - Osteitis deformans [None]
  - Cholecystitis [None]
